FAERS Safety Report 9624357 (Version 1)
Quarter: 2013Q4

REPORT INFORMATION
  Report Type: Spontaneous
  Country: US (occurrence: US)
  Receive Date: 20131015
  Receipt Date: 20131015
  Transmission Date: 20140711
  Serious: Yes (Death)
  Sender: FDA-Public Use
  Company Number: US-GLAXOSMITHKLINE-A1045439A

PATIENT
  Age: 55 Year
  Sex: Male

DRUGS (2)
  1. VOTRIENT [Suspect]
     Indication: SOFT TISSUE CANCER
     Dosage: 800MG PER DAY
     Route: 048
     Dates: start: 20120809
  2. HYDROCODONE + ACETAMINOPHEN [Concomitant]

REACTIONS (1)
  - Death [Fatal]
